FAERS Safety Report 9607889 (Version 2)
Quarter: 2013Q4

REPORT INFORMATION
  Report Type: Spontaneous
  Country: ES (occurrence: ES)
  Receive Date: 20131009
  Receipt Date: 20131009
  Transmission Date: 20140711
  Serious: Yes (Disabling, Other)
  Sender: FDA-Public Use
  Company Number: ES-JNJFOC-20130916410

PATIENT
  Age: 51 Year
  Sex: Male
  Weight: 82 kg

DRUGS (7)
  1. REMICADE [Suspect]
     Indication: CROHN^S DISEASE
     Dosage: STRENGTH 100 MG
     Route: 042
     Dates: start: 20121121, end: 20130514
  2. IMUREL [Concomitant]
     Route: 065
     Dates: start: 2003, end: 20130514
  3. ADIRO [Concomitant]
     Indication: MYOCARDIAL ISCHAEMIA
     Route: 065
     Dates: start: 2009
  4. ATORVASTATIN [Concomitant]
     Indication: MYOCARDIAL ISCHAEMIA
     Route: 065
     Dates: start: 2009
  5. METRONIDAZOLE [Concomitant]
     Indication: ANORECTAL DISORDER
     Dosage: DOSE STRENGTH- 1TABLET/8H ONE WEEK/MONTH
     Route: 065
     Dates: start: 201211
  6. VITAMIN B12 [Concomitant]
     Indication: CROHN^S DISEASE
     Route: 030
  7. AZATHIOPRINE [Concomitant]
     Indication: CROHN^S DISEASE
     Route: 048

REACTIONS (3)
  - Pustular psoriasis [Recovering/Resolving]
  - Paradoxical drug reaction [Recovering/Resolving]
  - Herpes zoster [Recovered/Resolved]
